FAERS Safety Report 14350961 (Version 11)
Quarter: 2018Q3

REPORT INFORMATION
  Report Type: Report from Study
  Country: FR (occurrence: FR)
  Receive Date: 20180104
  Receipt Date: 20180905
  Transmission Date: 20181010
  Serious: Yes (Hospitalization, Disabling, Other)
  Sender: FDA-Public Use
  Company Number: FR-GILEAD-2017-0313077

PATIENT
  Age: 32 Year
  Sex: Female
  Weight: 87 kg

DRUGS (5)
  1. EMTRICITABINE/TENOFOVIR DISOPROXIL FUMARATE [Suspect]
     Active Substance: EMTRICITABINE\TENOFOVIR DISOPROXIL FUMARATE
     Indication: HIV INFECTION
     Dosage: 200MG/245MG, QD
     Route: 048
     Dates: start: 20170509, end: 20171103
  2. ISENTRESS [Suspect]
     Active Substance: RALTEGRAVIR POTASSIUM
     Indication: HIV INFECTION
     Dosage: 800 MG, QD
     Route: 048
     Dates: start: 20170509, end: 20171103
  3. ISENTRESS [Suspect]
     Active Substance: RALTEGRAVIR POTASSIUM
     Dosage: 400 MG, BID
     Route: 048
     Dates: start: 20171120
  4. ISENTRESS [Suspect]
     Active Substance: RALTEGRAVIR POTASSIUM
     Dosage: 400 MG, QD
     Route: 048
     Dates: start: 201705, end: 201711
  5. EMTRICITABINE/TENOFOVIR DISOPROXIL FUMARATE [Suspect]
     Active Substance: EMTRICITABINE\TENOFOVIR DISOPROXIL FUMARATE
     Dosage: 1 DF, QD
     Route: 048
     Dates: start: 20171110

REACTIONS (7)
  - Maternal exposure during pregnancy [Recovered/Resolved]
  - Hepatocellular injury [Recovered/Resolved]
  - Pre-eclampsia [Unknown]
  - Necrobiosis [Recovered/Resolved]
  - Abortion induced [Recovered/Resolved with Sequelae]
  - Caesarean section [Recovered/Resolved with Sequelae]
  - Foetal death [Recovered/Resolved]

NARRATIVE: CASE EVENT DATE: 20170618
